FAERS Safety Report 5244145-5 (Version None)
Quarter: 2007Q1

REPORT INFORMATION
  Report Type: 
  Country: None (occurrence: None)
  Receive Date: 20070222
  Receipt Date: 20070213
  Transmission Date: 20070707
  Serious: Yes (Hospitalization)
  Sender: FDA-Public Use
  Company Number: AT-ROCHE-482404

PATIENT
  Age: 62 Year
  Sex: Female
  Weight: 60 kg

DRUGS (3)
  1. BONVIVA [Suspect]
     Indication: OSTEOPOROSIS
     Dosage: STRENGTH: 3MG/3ML
     Route: 042
     Dates: start: 20070125
  2. CONCOR [Concomitant]
     Indication: HYPERTONIA
     Dosage: DOSAGE REGIMEN: 2.5 MG/7 DAYS
     Route: 048
  3. KREON [Concomitant]

REACTIONS (2)
  - CHILLS [None]
  - HYPERTONIA [None]
